FAERS Safety Report 5306391-1 (Version None)
Quarter: 2007Q2

REPORT INFORMATION
  Report Type: 
  Country: None (occurrence: None)
  Receive Date: 20070424
  Receipt Date: 20070418
  Transmission Date: 20071010
  Serious: Yes (Hospitalization)
  Sender: FDA-Public Use
  Company Number: JP-ALLERGAN-0703930US

PATIENT
  Sex: Male

DRUGS (2)
  1. BOTOX INJECTION 100 [Suspect]
     Indication: FACIAL SPASM
     Dosage: UNK, SINGLE
     Route: 030
     Dates: start: 20060316, end: 20060316
  2. BOTOX INJECTION 100 [Suspect]
     Dosage: UNK, SINGLE
     Route: 030
     Dates: start: 20061124, end: 20061124

REACTIONS (1)
  - STEVENS-JOHNSON SYNDROME [None]
